FAERS Safety Report 10404154 (Version 1)
Quarter: 2014Q1

REPORT INFORMATION
  Report Type: Spontaneous
  Country: US (occurrence: None)
  Receive Date: 20131002
  Receipt Date: 20131002
  Transmission Date: 20141002
  Serious: Yes (Other)
  Sender: FDA-Public Use
  Company Number: 2013S1001373

PATIENT
  Age: 73 Year
  Sex: Female
  Weight: 70.31 kg

DRUGS (4)
  1. LIVALO (PITAVASTATIN) TABLETS 2 MG [Suspect]
     Indication: BLOOD CHOLESTEROL
     Route: 048
     Dates: start: 201305, end: 20130713
  2. LABETALOL [Concomitant]
  3. JANUMET [Concomitant]
  4. ULORIC [Concomitant]

REACTIONS (7)
  - Muscular weakness [None]
  - Myalgia [None]
  - Diarrhoea [None]
  - Abdominal pain [None]
  - Fatigue [None]
  - Somnolence [None]
  - Blood creatine phosphokinase increased [None]
